FAERS Safety Report 6035956-7 (Version None)
Quarter: 2009Q1

REPORT INFORMATION
  Report Type: 
  Country: None (occurrence: None)
  Receive Date: 20090113
  Receipt Date: 20090105
  Transmission Date: 20090719
  Serious: Yes (Hospitalization)
  Sender: FDA-Public Use
  Company Number: JP-EISAI MEDICAL RESEARCH-E2090-00624-SPO-JP

PATIENT
  Age: 76 Year
  Sex: Male

DRUGS (5)
  1. EXCEGRAN [Suspect]
     Indication: EPILEPSY
     Route: 048
     Dates: start: 20051025, end: 20081114
  2. GASTER D [Suspect]
     Indication: PROPHYLAXIS
     Route: 048
     Dates: start: 20080613, end: 20081114
  3. OLMETEC [Concomitant]
     Route: 048
  4. NEUROTROPIN [Concomitant]
     Route: 048
  5. CLINORIL [Concomitant]
     Route: 048

REACTIONS (1)
  - GRANULOCYTOPENIA [None]
